FAERS Safety Report 8383755-3 (Version None)
Quarter: 2012Q2

REPORT INFORMATION
  Report Type: 
  Country: None (occurrence: None)
  Receive Date: 20120524
  Receipt Date: 20120213
  Transmission Date: 20120825
  Serious: Yes (Life-Threatening, Other)
  Sender: FDA-Public Use
  Company Number: US-ROCHE-1039955

PATIENT
  Sex: Male

DRUGS (1)
  1. ZELBORAF [Suspect]
     Indication: METASTATIC MALIGNANT MELANOMA
     Route: 048
     Dates: start: 20120101

REACTIONS (6)
  - METASTASES TO CENTRAL NERVOUS SYSTEM [None]
  - DISEASE PROGRESSION [None]
  - NAUSEA [None]
  - BRAIN NEOPLASM [None]
  - VISION BLURRED [None]
  - VOMITING [None]
